FAERS Safety Report 25044740 (Version 1)
Quarter: 2025Q1

REPORT INFORMATION
  Report Type: Report from Study
  Country: CN (occurrence: CN)
  Receive Date: 20250306
  Receipt Date: 20250306
  Transmission Date: 20250408
  Serious: Yes (Hospitalization, Other)
  Sender: GILEAD
  Company Number: CN-GILEAD-2025-0705122

PATIENT
  Age: 50 Year
  Sex: Female

DRUGS (1)
  1. SACITUZUMAB GOVITECAN-HZIY [Suspect]
     Active Substance: SACITUZUMAB GOVITECAN-HZIY
     Indication: Breast cancer
     Route: 065
     Dates: start: 20241230

REACTIONS (3)
  - Tumour rupture [Unknown]
  - Tumour haemorrhage [Unknown]
  - Anaemia [Unknown]

NARRATIVE: CASE EVENT DATE: 20250101
